FAERS Safety Report 18628603 (Version 1)
Quarter: 2020Q4

REPORT INFORMATION
  Report Type: Spontaneous
  Country: LU (occurrence: LU)
  Receive Date: 20201217
  Receipt Date: 20201217
  Transmission Date: 20210114
  Serious: Yes (Other)
  Sender: FDA-Public Use
  Company Number: LU-TEVA-2020-LU-1858702

PATIENT
  Age: 38 Year
  Sex: Male
  Weight: 48 kg

DRUGS (21)
  1. CREON 25 000 [Concomitant]
     Indication: PANCREATIC FAILURE
     Dosage: 1 OR 2 CAPSULES 3 TIMES PER DAY
     Route: 048
  2. CLEXANE [Concomitant]
     Active Substance: ENOXAPARIN SODIUM
     Dosage: 40 MG
     Route: 058
     Dates: start: 20201019, end: 20201022
  3. LYSOMUCIL 300 MG [Suspect]
     Active Substance: ACETYLCYSTEINE
     Dosage: UNIT DOSE : 300 MG
     Route: 042
     Dates: start: 20201031, end: 20201109
  4. MIDAZOLAM B BRAUN [Suspect]
     Active Substance: MIDAZOLAM HYDROCHLORIDE
     Indication: SEDATION
     Dosage: UNIT DOSE : 2 MG
     Route: 042
     Dates: start: 20201027, end: 20201106
  5. MOVICOL [Suspect]
     Active Substance: POLYETHYLENE GLYCOL 3350\POTASSIUM CHLORIDE\SODIUM BICARBONATE\SODIUM CHLORIDE
     Dosage: UNIT DOSE : 1  DF
     Route: 048
     Dates: start: 20201026, end: 20201109
  6. LEVOPHED [Suspect]
     Active Substance: NOREPINEPHRINE BITARTRATE
     Indication: CHEMOTHERAPY CYTOKINE PROPHYLAXIS
     Dosage: UNIT DOSE : 0.12 UG/KG
     Route: 042
     Dates: start: 20201019, end: 20201106
  7. DEXDOR [Suspect]
     Active Substance: DEXMEDETOMIDINE HYDROCHLORIDE
     Indication: SEDATION
     Dosage: UNIT DOSE :0.8 UG/KG
     Route: 042
     Dates: start: 20201020, end: 20201106
  8. ACTRAPID [Concomitant]
     Active Substance: INSULIN HUMAN
     Dosage: UNIT DOSE :  1.5 IU
     Route: 058
  9. CLEXANE [Concomitant]
     Active Substance: ENOXAPARIN SODIUM
     Indication: THROMBOSIS PROPHYLAXIS
     Dosage: UNIT DOSE : 40 MG
     Route: 058
     Dates: start: 20201022
  10. CIPROFLOXACINE KABI [Suspect]
     Active Substance: CIPROFLOXACIN
     Dosage: UNIT DOSE : 400 MG
     Route: 042
     Dates: start: 20201019, end: 20201111
  11. MEROPENEM KABI [Suspect]
     Active Substance: MEROPENEM
     Dosage: UNIT DOSE : 2 G
     Route: 042
     Dates: start: 20201022, end: 20201111
  12. NEXIAM [Concomitant]
     Active Substance: ESOMEPRAZOLE
     Dosage: LONG TERM TREATMENT, ONGOING , UNIT DOSE : 40 MG
     Route: 042
  13. DUOVENT [Concomitant]
     Active Substance: FENOTEROL HYDROBROMIDE
     Dosage: UNIT DOSE : 1 DF
     Route: 055
     Dates: start: 20201019
  14. FORTECORTIN [Concomitant]
     Active Substance: DEXAMETHASONE
     Indication: COVID-19
     Dosage: UNIT DOSE :  8 MG
     Route: 042
     Dates: start: 20201022, end: 20201104
  15. COLISTINEB INHALATION [Suspect]
     Active Substance: COLISTIMETHATE SODIUM
     Route: 055
     Dates: start: 20201104
  16. OBRACIN [Suspect]
     Active Substance: TOBRAMYCIN
     Indication: RESPIRATORY TRACT INFECTION
     Dosage: UNIT DOSE : 385 MG
     Route: 042
     Dates: start: 20201030, end: 20201111
  17. VANCOMYCINE [Suspect]
     Active Substance: VANCOMYCIN
     Dosage: UNIT DOSE : 2 G
     Route: 042
     Dates: start: 20201019, end: 20201111
  18. LASIX [Suspect]
     Active Substance: FUROSEMIDE
     Dosage: UNIT DOSE : 20 MG
     Route: 042
     Dates: start: 20201023, end: 20201108
  19. CAYSTON INHALATION [Concomitant]
     Active Substance: AZTREONAM LYSINE
     Dosage: UNIT DOSE : 75 MG
     Route: 055
  20. PARACETAMOL B BRAUN [Concomitant]
     Active Substance: ACETAMINOPHEN
     Dosage: UNIT DOSE :  1  G
     Route: 042
     Dates: start: 20201019
  21. ZITHROMAX [Concomitant]
     Active Substance: AZITHROMYCIN DIHYDRATE
     Dosage: 250 MG ON MONDAYS, WEDNESDAYS AND FRIDAYS , UNIT DOSE : 750 MG
     Route: 048

REACTIONS (2)
  - Myoclonus [Not Recovered/Not Resolved]
  - Generalised tonic-clonic seizure [Recovered/Resolved]

NARRATIVE: CASE EVENT DATE: 20201107
